FAERS Safety Report 4677629-9 (Version None)
Quarter: 2005Q2

REPORT INFORMATION
  Report Type: 
  Country: None (occurrence: None)
  Receive Date: 20050531
  Receipt Date: 20050412
  Transmission Date: 20051028
  Serious: Yes (Hospitalization)
  Sender: FDA-Public Use
  Company Number: US-ROCHE-403962

PATIENT
  Age: 54 Year
  Sex: Male
  Weight: 76.3 kg

DRUGS (9)
  1. PEG-INTERFERON ALFA 2A (RO 25-8310) [Suspect]
     Route: 058
     Dates: start: 20050114, end: 20050121
  2. RIBAVIRIN [Suspect]
     Route: 048
     Dates: start: 20050114, end: 20050126
  3. NORVASC [Concomitant]
     Dates: start: 20040915
  4. LYSINE [Concomitant]
     Dates: start: 20030615
  5. NEXIUM [Concomitant]
     Dates: start: 20040815, end: 20050210
  6. AUGMENTIN '125' [Concomitant]
     Dates: start: 20050117, end: 20050127
  7. CARAFATE [Concomitant]
     Dates: start: 20050117, end: 20050122
  8. MULTIVITAMIN [Concomitant]
     Dates: start: 20040815
  9. ARANESP [Concomitant]
     Dates: start: 20030715, end: 20050127

REACTIONS (12)
  - ABDOMINAL PAIN [None]
  - COMPUTERISED TOMOGRAM ABNORMAL [None]
  - GASTROINTESTINAL DISORDER [None]
  - HAEMODIALYSIS [None]
  - HAEMOPTYSIS [None]
  - LYMPHADENOPATHY MEDIASTINAL [None]
  - PNEUMONITIS [None]
  - PULMONARY ALVEOLAR HAEMORRHAGE [None]
  - PULMONARY CONGESTION [None]
  - RENAL CYST [None]
  - RENAL FAILURE ACUTE [None]
  - VASCULITIS [None]
